FAERS Safety Report 12985289 (Version 2)
Quarter: 2016Q4

REPORT INFORMATION
  Report Type: Spontaneous
  Country: CA (occurrence: CA)
  Receive Date: 20161130
  Receipt Date: 20161212
  Transmission Date: 20170207
  Serious: Yes (Hospitalization, Other)
  Sender: FDA-Public Use
  Company Number: CA-CONCORDIA PHARMACEUTICALS INC.-GSH201611-006082

PATIENT
  Age: 48 Year
  Sex: Female

DRUGS (7)
  1. METHOTREXATE SODIUM. [Suspect]
     Active Substance: METHOTREXATE SODIUM
  2. SULFASALAZINE. [Concomitant]
     Active Substance: SULFASALAZINE
     Dates: start: 201508
  3. NAPROSYN [Concomitant]
     Active Substance: NAPROXEN
  4. LEFLUNOMIDE. [Suspect]
     Active Substance: LEFLUNOMIDE
  5. ORENCIA [Suspect]
     Active Substance: ABATACEPT
     Dates: end: 20161031
  6. HYDROXYCHLOROQUINE [Suspect]
     Active Substance: HYDROXYCHLOROQUINE
  7. ENBREL [Suspect]
     Active Substance: ETANERCEPT
     Indication: RHEUMATOID ARTHRITIS

REACTIONS (7)
  - Amnesia [Unknown]
  - Drug intolerance [Unknown]
  - Delirium [Unknown]
  - Type 2 diabetes mellitus [Unknown]
  - Rheumatoid arthritis [Unknown]
  - Dislocation of vertebra [Unknown]
  - Wound infection [Unknown]

NARRATIVE: CASE EVENT DATE: 2013
